FAERS Safety Report 23574812 (Version 1)
Quarter: 2024Q1

REPORT INFORMATION
  Report Type: Spontaneous
  Country: US (occurrence: None)
  Receive Date: 20240227
  Receipt Date: 20240227
  Transmission Date: 20240410
  Serious: Yes (Other)
  Sender: FDA-Public Use
  Company Number: None

PATIENT
  Age: 56 Year
  Sex: Female

DRUGS (15)
  1. AMBRISENTAN [Suspect]
     Active Substance: AMBRISENTAN
     Indication: Pulmonary arterial hypertension
     Dosage: 10MG QD
     Route: 048
     Dates: start: 20181026
  2. TADALAFIL [Concomitant]
     Active Substance: TADALAFIL
  3. ZOLPIDEM [Concomitant]
     Active Substance: ZOLPIDEM TARTRATE
  4. MIRABEGRON [Concomitant]
     Active Substance: MIRABEGRON
  5. PRADAXA [Concomitant]
     Active Substance: DABIGATRAN ETEXILATE MESYLATE
  6. BUPROPION [Concomitant]
     Active Substance: BUPROPION
  7. TRAZODONE [Concomitant]
     Active Substance: TRAZODONE HYDROCHLORIDE
  8. LACTOBACILLUS ACIDOPHILUS [Concomitant]
     Active Substance: LACTOBACILLUS ACIDOPHILUS
  9. QUETIAPINE [Concomitant]
     Active Substance: QUETIAPINE
  10. GABAPENTIN [Concomitant]
  11. narcan spray [Concomitant]
  12. ACETAMINOPHEN [Concomitant]
  13. meclizine [Concomitant]
  14. FUROSEMIDE [Concomitant]
     Active Substance: FUROSEMIDE
  15. voltaren top gel [Concomitant]

REACTIONS (1)
  - Urinary tract infection [None]

NARRATIVE: CASE EVENT DATE: 20240219
